FAERS Safety Report 6729076-3 (Version None)
Quarter: 2010Q2

REPORT INFORMATION
  Report Type: 
  Country: None (occurrence: None)
  Receive Date: 20100517
  Receipt Date: 20100319
  Transmission Date: 20101027
  Serious: No
  Sender: FDA-Public Use
  Company Number: US-ABBOTT-10P-163-0634468-00

PATIENT
  Sex: Female
  Weight: 86.26 kg

DRUGS (8)
  1. SIMCOR [Suspect]
     Indication: BLOOD CHOLESTEROL INCREASED
     Dosage: 500/20MG, ONCE DAILY
     Dates: start: 20100301, end: 20100301
  2. SIMCOR [Suspect]
     Indication: BLOOD TRIGLYCERIDES INCREASED
  3. AVANDIA [Concomitant]
     Indication: DIABETES MELLITUS
  4. PRANDIN [Concomitant]
     Indication: DIABETES MELLITUS
  5. JANUMET [Concomitant]
     Indication: DIABETES MELLITUS
     Dosage: 50/1000, ONCE DAILY
  6. ATENOLOL [Concomitant]
     Indication: HYPERTENSION
  7. QUINAPRIL [Concomitant]
     Indication: HYPERTENSION
  8. UNKNOWN BLOOD PRESSURE MEDICATION IMULAURIDE [Concomitant]
     Indication: HYPERTENSION

REACTIONS (3)
  - ERYTHEMA [None]
  - FLUSHING [None]
  - PALPITATIONS [None]
